FAERS Safety Report 5092531-9 (Version None)
Quarter: 2006Q3

REPORT INFORMATION
  Report Type: 
  Country: None (occurrence: None)
  Receive Date: 20060727
  Receipt Date: 20060615
  Transmission Date: 20061208
  Serious: Yes (Other)
  Sender: FDA-Public Use
  Company Number: 2006078125

PATIENT
  Age: 55 Year
  Sex: Male

DRUGS (1)
  1. LYRICA [Suspect]
     Indication: NEUROPATHY
     Dosage: 150 MG (75 MG,2 IN 1 D),ORAL
     Route: 048
     Dates: start: 20060601, end: 20060601

REACTIONS (3)
  - DIZZINESS [None]
  - SOMNOLENCE [None]
  - VISUAL DISTURBANCE [None]
